FAERS Safety Report 9995723 (Version 1)
Quarter: 2014Q1

REPORT INFORMATION
  Report Type: Spontaneous
  Country: US (occurrence: None)
  Receive Date: 20140304
  Receipt Date: 20140304
  Transmission Date: 20141002
  Serious: Yes (Other)
  Sender: FDA-Public Use
  Company Number: RB-59792-2013

PATIENT
  Sex: Male

DRUGS (3)
  1. SUBOXONE [Suspect]
     Indication: DRUG DEPENDENCE
     Route: 064
     Dates: start: 2012, end: 20121227
  2. SUBUTEX [Suspect]
     Indication: DRUG DEPENDENCE
     Route: 064
     Dates: start: 20121228, end: 20130713
  3. NICOTINE [Suspect]
     Indication: PRODUCT USED FOR UNKNOWN INDICATION
     Dosage: (MOTHER WAS SMOKING 10 CIGARETTES A DAY. TRANSPLACENTAL)
     Route: 064
     Dates: start: 20120930, end: 20130713

REACTIONS (6)
  - Maternal drugs affecting foetus [None]
  - Foetal exposure during pregnancy [None]
  - Caesarean section [None]
  - Exposure during breast feeding [None]
  - Drug withdrawal syndrome neonatal [None]
  - Foetal growth restriction [None]
